FAERS Safety Report 12619622 (Version 2)
Quarter: 2016Q3

REPORT INFORMATION
  Report Type: Spontaneous
  Country: US (occurrence: US)
  Receive Date: 20160803
  Receipt Date: 20160815
  Transmission Date: 20161109
  Serious: Yes (Other)
  Sender: FDA-Public Use
  Company Number: US-LEO PHARMA-243095

PATIENT
  Age: 57 Year
  Sex: Male

DRUGS (1)
  1. DAIVOBET [Suspect]
     Active Substance: BETAMETHASONE DIPROPIONATE\CALCIPOTRIENE
     Indication: PRODUCT USED FOR UNKNOWN INDICATION
     Route: 061

REACTIONS (5)
  - Confusional state [Recovered/Resolved]
  - Substance-induced psychotic disorder [Recovered/Resolved]
  - Hyperhidrosis [Recovered/Resolved]
  - Formication [Recovered/Resolved]
  - Insomnia [Recovered/Resolved]
